FAERS Safety Report 5388917-5 (Version None)
Quarter: 2007Q3

REPORT INFORMATION
  Report Type: 
  Country: None (occurrence: None)
  Receive Date: 20070717
  Receipt Date: 20070709
  Transmission Date: 20080115
  Serious: Yes (Other)
  Sender: FDA-Public Use
  Company Number: PHEH2007US02813

PATIENT
  Age: 63 Year
  Sex: Male

DRUGS (1)
  1. AREDIA [Suspect]
     Indication: METASTASES TO BONE
     Dosage: 90MG  QMOS
     Dates: start: 20050908, end: 20051208

REACTIONS (9)
  - ABNORMAL SENSATION IN EYE [None]
  - BLINDNESS [None]
  - CHILLS [None]
  - EYE PAIN [None]
  - INFUSION SITE REACTION [None]
  - INFUSION SITE SWELLING [None]
  - OPTIC ISCHAEMIC NEUROPATHY [None]
  - PYREXIA [None]
  - VISUAL DISTURBANCE [None]
